FAERS Safety Report 4616458-9 (Version None)
Quarter: 2005Q1

REPORT INFORMATION
  Report Type: 
  Country: None (occurrence: None)
  Receive Date: 20050318
  Receipt Date: 20050308
  Transmission Date: 20050727
  Serious: Yes (Other)
  Sender: FDA-Public Use
  Company Number: 2005026365

PATIENT
  Age: 32 Year
  Sex: Female

DRUGS (1)
  1. BEXTRA [Suspect]
     Indication: BACK PAIN
     Dosage: 20 MG (1 IN 1 D), ORAL
     Route: 048
     Dates: start: 20041216, end: 20041219

REACTIONS (5)
  - ARTHRALGIA [None]
  - BLISTER [None]
  - DERMATITIS BULLOUS [None]
  - INFLUENZA [None]
  - MYALGIA [None]
